FAERS Safety Report 16333035 (Version 1)
Quarter: 2019Q2

REPORT INFORMATION
  Report Type: Spontaneous
  Country: US (occurrence: JP)
  Receive Date: 20190520
  Receipt Date: 20190520
  Transmission Date: 20190711
  Serious: Yes (Life-Threatening, Hospitalization, Disabling, Other)
  Sender: FDA-Public Use
  Company Number: US-009507513-1003USA01656

PATIENT
  Age: 82 Year
  Sex: Male
  Weight: 63 kg

DRUGS (3)
  1. AMLODIN OD [Concomitant]
     Active Substance: AMLODIPINE BESYLATE
     Indication: HYPERTENSION
     Dosage: 5 MG, QD
     Route: 048
     Dates: start: 20100120, end: 20100308
  2. JANUVIA [Suspect]
     Active Substance: SITAGLIPTIN PHOSPHATE
     Indication: DIABETES MELLITUS
     Dosage: 50 MG, QD
     Route: 048
     Dates: start: 20100224, end: 20100305
  3. PREMINENT TABLETS [Concomitant]
     Active Substance: HYDROCHLOROTHIAZIDE\LOSARTAN POTASSIUM
     Indication: HYPERTENSION
     Dosage: UNK, QD
     Route: 048
     Dates: start: 20091216, end: 20100308

REACTIONS (11)
  - Rhabdomyolysis [Recovered/Resolved]
  - Cerebral infarction [Recovered/Resolved with Sequelae]
  - Decreased appetite [Not Recovered/Not Resolved]
  - Diarrhoea [Recovered/Resolved]
  - Pyelonephritis [Recovering/Resolving]
  - Respiratory arrest [Recovered/Resolved]
  - Dependence on respirator [Recovered/Resolved]
  - Dehydration [Recovered/Resolved]
  - Acute kidney injury [Recovered/Resolved]
  - Altered state of consciousness [Recovered/Resolved with Sequelae]
  - Melaena [Recovered/Resolved]

NARRATIVE: CASE EVENT DATE: 20100226
